FAERS Safety Report 8354690-1 (Version None)
Quarter: 2012Q2

REPORT INFORMATION
  Report Type: 
  Country: None (occurrence: None)
  Receive Date: 20120511
  Receipt Date: 20120504
  Transmission Date: 20120825
  Serious: Yes (Other)
  Sender: FDA-Public Use
  Company Number: US-JNJFOC-20120506929

PATIENT
  Sex: Female
  Weight: 65.77 kg

DRUGS (3)
  1. TRIMAX [Concomitant]
     Indication: BLOOD PRESSURE
     Route: 048
     Dates: start: 20110101
  2. XARELTO [Suspect]
     Indication: ATRIAL FIBRILLATION
     Route: 048
     Dates: start: 20120401
  3. LEXAPRO [Concomitant]
     Route: 048
     Dates: start: 20060101

REACTIONS (3)
  - HAEMORRHAGE [None]
  - PRURITUS [None]
  - OEDEMA PERIPHERAL [None]
